FAERS Safety Report 23990319 (Version 1)
Quarter: 2024Q2

REPORT INFORMATION
  Report Type: Spontaneous
  Country: US (occurrence: US)
  Receive Date: 20240619
  Receipt Date: 20240619
  Transmission Date: 20240716
  Serious: No
  Sender: FDA-Public Use
  Company Number: US-FreseniusKabi-FK202409368

PATIENT
  Age: 74 Year
  Sex: Female
  Weight: 76.2 kg

DRUGS (1)
  1. ADALIMUMAB-AACF [Suspect]
     Active Substance: ADALIMUMAB\ADALIMUMAB-AACF\ISOPROPYL ALCOHOL
     Indication: Rheumatoid arthritis
     Dosage: FORM OF ADMIN: INJECTION?ROUTE OF ADMIN - SUBCUTANEOUS TO THIGH IN SEPARATE SITES?ON 6TH WEEK OF TRE
     Dates: start: 20240501

REACTIONS (1)
  - Drug ineffective [Unknown]
